FAERS Safety Report 13465882 (Version 4)
Quarter: 2020Q3

REPORT INFORMATION
  Report Type: Other
  Country: CA (occurrence: CA)
  Receive Date: 20170421
  Receipt Date: 20200818
  Transmission Date: 20201102
  Serious: Yes (Hospitalization)
  Sender: FDA-Public Use
  Company Number: CA-ROCHE-ITM201503IM011452

PATIENT
  Age: 76 Year
  Sex: Male
  Weight: 88.2 kg

DRUGS (11)
  1. ESBRIET [Suspect]
     Active Substance: PIRFENIDONE
     Route: 048
     Dates: start: 201503
  2. ESBRIET [Suspect]
     Active Substance: PIRFENIDONE
     Route: 048
  3. TYLENOL [Concomitant]
     Active Substance: ACETAMINOPHEN
  4. AMLODIPINE [Concomitant]
     Active Substance: AMLODIPINE BESYLATE
  5. ROSUVASTATIN. [Concomitant]
     Active Substance: ROSUVASTATIN
  6. IRBESARTAN. [Concomitant]
     Active Substance: IRBESARTAN
  7. NIFEDIPINE. [Concomitant]
     Active Substance: NIFEDIPINE
  8. ELTROXIN [Concomitant]
     Active Substance: LEVOTHYROXINE
  9. ASA [Concomitant]
     Active Substance: ASPIRIN
  10. VITAMIN C [Concomitant]
     Active Substance: ASCORBIC ACID
  11. ESBRIET [Suspect]
     Active Substance: PIRFENIDONE
     Indication: IDIOPATHIC PULMONARY FIBROSIS
     Route: 048
     Dates: start: 20150303

REACTIONS (5)
  - Weight decreased [Unknown]
  - Pulmonary function test abnormal [Unknown]
  - Dyspnoea [Not Recovered/Not Resolved]
  - Lung diffusion test decreased [Unknown]
  - Nasopharyngitis [Not Recovered/Not Resolved]

NARRATIVE: CASE EVENT DATE: 20150307
